FAERS Safety Report 10892299 (Version 3)
Quarter: 2015Q2

REPORT INFORMATION
  Report Type: Spontaneous
  Country: US (occurrence: US)
  Receive Date: 20150306
  Receipt Date: 20150501
  Transmission Date: 20150821
  Serious: Yes (Other)
  Sender: FDA-Public Use
  Company Number: US-BAXTER-2015BAX012091

PATIENT
  Age: 93 Year
  Sex: Male

DRUGS (4)
  1. MIRALAX [Concomitant]
     Active Substance: POLYETHYLENE GLYCOL 3350
     Indication: CONSTIPATION
     Dosage: ONE CAP FULL
     Route: 065
  2. DIANEAL LOW CALCIUM PERITONEAL DIALYSIS SOLUTION WITH DEXTROSE [Suspect]
     Active Substance: CALCIUM CHLORIDE\DEXTROSE\MAGNESIUM CHLORIDE\SODIUM CHLORIDE\SODIUM LACTATE
     Indication: CHRONIC KIDNEY DISEASE
     Dosage: AS REQUIRED
     Route: 033
     Dates: start: 201306
  3. METAMUCIL [Concomitant]
     Active Substance: PLANTAGO SEED
     Indication: CONSTIPATION
     Route: 048
  4. DIANEAL LOW CALCIUM PERITONEAL DIALYSIS SOLUTION WITH DEXTROSE [Suspect]
     Active Substance: CALCIUM CHLORIDE\DEXTROSE\MAGNESIUM CHLORIDE\SODIUM CHLORIDE\SODIUM LACTATE
     Indication: CHRONIC KIDNEY DISEASE
     Dosage: AS REQUIRED
     Route: 033
     Dates: start: 201306

REACTIONS (10)
  - Asthenia [Recovering/Resolving]
  - Weight decreased [Recovering/Resolving]
  - Haemoglobin decreased [Recovering/Resolving]
  - Malaise [Unknown]
  - Upper respiratory tract infection [Recovering/Resolving]
  - Retching [Recovering/Resolving]
  - Respiratory disorder [Unknown]
  - Haematochezia [Recovering/Resolving]
  - Infection [Recovering/Resolving]
  - Blood iron decreased [Recovering/Resolving]

NARRATIVE: CASE EVENT DATE: 2014
